FAERS Safety Report 14826456 (Version 1)
Quarter: 2018Q2

REPORT INFORMATION
  Report Type: Spontaneous
  Country: US (occurrence: US)
  Receive Date: 20180404
  Receipt Date: 20180404
  Transmission Date: 20180711
  Serious: No
  Sender: FDA-Public Use
  Company Number: None

PATIENT
  Sex: Male

DRUGS (4)
  1. SIMVASTATIN TABLET [Concomitant]
     Active Substance: SIMVASTATIN
  2. LOVASTATIN TABLET [Suspect]
     Active Substance: LOVASTATIN
  3. PRAVASTATIN TABLET [Suspect]
     Active Substance: PRAVASTATIN
  4. ATORVASTATIN TABLET [Concomitant]
     Active Substance: ATORVASTATIN

REACTIONS (1)
  - Drug ineffective [None]
